FAERS Safety Report 5312819-3 (Version None)
Quarter: 2007Q2

REPORT INFORMATION
  Report Type: 
  Country: None (occurrence: None)
  Receive Date: 20070430
  Receipt Date: 20070315
  Transmission Date: 20071010
  Serious: Yes (Hospitalization)
  Sender: FDA-Public Use
  Company Number: US-AMGEN-US215283

PATIENT
  Sex: Male

DRUGS (12)
  1. PROCRIT [Suspect]
     Indication: ANAEMIA OF MALIGNANT DISEASE
     Route: 058
     Dates: start: 20061130, end: 20070221
  2. CILASTATIN SODIUM W/IMIPENEM [Concomitant]
  3. DECADRON [Concomitant]
  4. CASPOFUNGIN [Concomitant]
  5. NEUPOGEN [Concomitant]
  6. FLUNISOLIDE [Concomitant]
  7. HYDROMORPHONE HCL [Concomitant]
  8. METOPROLOL SUCCINATE [Concomitant]
  9. ZOFRAN [Concomitant]
  10. VORICONAZOLE [Concomitant]
  11. TEMAZEPAM [Concomitant]
  12. OMEPRAZOLE [Concomitant]

REACTIONS (2)
  - BONE MARROW FAILURE [None]
  - DRUG INEFFECTIVE [None]
